FAERS Safety Report 11365544 (Version 3)
Quarter: 2015Q4

REPORT INFORMATION
  Report Type: Report from Study
  Country: ES (occurrence: ES)
  Receive Date: 20150811
  Receipt Date: 20151231
  Transmission Date: 20160304
  Serious: Yes (Other)
  Sender: FDA-Public Use
  Company Number: ES-AMGEN-ESPSL2015061745

PATIENT
  Age: 80 Year
  Sex: Male
  Weight: 61.5 kg

DRUGS (1)
  1. ARANESP [Suspect]
     Active Substance: DARBEPOETIN ALFA
     Indication: RENAL FAILURE
     Dosage: 30 MUG, QWK
     Route: 058
     Dates: start: 20131120

REACTIONS (4)
  - Nephroangiosclerosis [Unknown]
  - Dialysis [Unknown]
  - Renal failure [Unknown]
  - Nephropathy [Unknown]

NARRATIVE: CASE EVENT DATE: 20150529
